FAERS Safety Report 18289966 (Version 3)
Quarter: 2021Q1

REPORT INFORMATION
  Report Type: Report from Study
  Country: None (occurrence: US)
  Receive Date: 20200921
  Receipt Date: 20210122
  Transmission Date: 20210419
  Serious: Yes (Hospitalization, Other)
  Sender: FDA-Public Use
  Company Number: US-ABBVIE-20K-163-3572524-00

PATIENT
  Sex: Female
  Weight: 72.19 kg

DRUGS (2)
  1. HUMIRA [Suspect]
     Active Substance: ADALIMUMAB
     Indication: PSORIASIS
     Route: 058
  2. SKYRIZI [Suspect]
     Active Substance: RISANKIZUMAB-RZAA
     Indication: PSORIASIS
     Route: 058

REACTIONS (8)
  - Drug hypersensitivity [Unknown]
  - Arthritis [Not Recovered/Not Resolved]
  - Myocardial infarction [Recovering/Resolving]
  - Myocardial infarction [Recovering/Resolving]
  - Therapeutic product effect incomplete [Unknown]
  - Toothache [Not Recovered/Not Resolved]
  - Finger deformity [Not Recovered/Not Resolved]
  - Angioplasty [Recovered/Resolved]

NARRATIVE: CASE EVENT DATE: 2015
